FAERS Safety Report 9174769 (Version 2)
Quarter: 2013Q2

REPORT INFORMATION
  Report Type: Spontaneous
  Country: US (occurrence: FR)
  Receive Date: 20130320
  Receipt Date: 20130403
  Transmission Date: 20140414
  Serious: Yes (Hospitalization, Other)
  Sender: FDA-Public Use
  Company Number: FR-PFIZER INC-2013090152

PATIENT
  Age: 42 Year
  Sex: Male

DRUGS (1)
  1. DI-HYDAN [Suspect]
     Indication: CONVULSION
     Dosage: UNK

REACTIONS (18)
  - Suicide attempt [Recovering/Resolving]
  - Overdose [Recovered/Resolved]
  - Toxicity to various agents [Recovered/Resolved]
  - Confusional state [Recovered/Resolved]
  - Diplopia [Recovered/Resolved]
  - Nystagmus [Recovered/Resolved]
  - Hyperreflexia [Recovering/Resolving]
  - Tremor [Recovered/Resolved]
  - Somnolence [Recovered/Resolved]
  - Walking disability [Recovering/Resolving]
  - Visual impairment [Recovered/Resolved]
  - Fall [Recovering/Resolving]
  - Dysarthria [Recovered/Resolved]
  - Gingivitis [Not Recovered/Not Resolved]
  - Balance disorder [Recovered/Resolved]
  - Vomiting [Recovered/Resolved]
  - Stomatitis [Recovering/Resolving]
  - Pain in extremity [Unknown]
